FAERS Safety Report 8297653-7 (Version None)
Quarter: 2012Q2

REPORT INFORMATION
  Report Type: 
  Country: None (occurrence: None)
  Receive Date: 20120419
  Receipt Date: 20120413
  Transmission Date: 20120825
  Serious: Yes (Hospitalization)
  Sender: FDA-Public Use
  Company Number: DE-PFIZER INC-2012092263

PATIENT
  Age: 71 Year
  Sex: Female
  Weight: 70.5 kg

DRUGS (17)
  1. SOMATROPIN [Suspect]
     Indication: GROWTH HORMONE DEFICIENCY
     Dosage: 0.2 IU, 1X/DAY
     Dates: start: 19961114, end: 19961211
  2. HYDROCORTISONE [Concomitant]
     Dosage: 15 MG, 3X/DAY
     Dates: start: 20031219
  3. LEVOTHYROXINE [Concomitant]
     Indication: BLOOD THYROID STIMULATING HORMONE DECREASED
     Dosage: 75 UG, 1X/DAY
     Dates: start: 19860701, end: 20001106
  4. KLIOGEST ^NOVO INDUSTRI^ [Concomitant]
     Indication: BLOOD FOLLICLE STIMULATING HORMONE DECREASED
  5. SOMATROPIN [Suspect]
     Dosage: 0.4 IU, 1X/DAY
     Dates: start: 19961212, end: 19980803
  6. DESMOPRESSIN [Concomitant]
     Indication: BLOOD ANTIDIURETIC HORMONE DECREASED
     Dosage: 10 UG, 1X/DAY
     Dates: start: 19960515, end: 20001106
  7. SOMATROPIN [Suspect]
     Dosage: 0.27 MG, 1X/DAY
     Dates: start: 19980804, end: 20010702
  8. SOMATROPIN [Suspect]
     Dosage: 0.3 MG, 1X/DAY
     Dates: start: 20040914, end: 20060904
  9. LEVOTHYROXINE [Concomitant]
     Dosage: 100 UG, 1X/DAY
     Dates: start: 20001107, end: 20060619
  10. SOMATROPIN [Suspect]
     Dosage: 0.2 MG, 1X/DAY
     Dates: start: 20060905
  11. LEVOTHYROXINE SODIUM [Concomitant]
     Dosage: 100 UG, 1X/DAY
     Dates: start: 20031219, end: 20060919
  12. LEVOTHYROXINE SODIUM [Concomitant]
     Dosage: 125 UG, 1X/DAY
     Dates: start: 20060920
  13. SOMATROPIN [Suspect]
     Dosage: 0.4 MG, 1X/DAY
     Dates: start: 20030225, end: 20040913
  14. LEVOTHYROXINE SODIUM [Concomitant]
     Dosage: 125 UG, 1X/DAY
     Dates: start: 20001110, end: 20031218
  15. HYDROCORTISONE [Concomitant]
     Indication: BLOOD CORTICOTROPHIN DECREASED
     Dosage: 20 MG, 1X/DAY
     Dates: start: 19960501, end: 20000117
  16. SOMATROPIN [Suspect]
     Dosage: 0.3 MG, 1X/DAY
     Dates: start: 20010703, end: 20030224
  17. KLIOGEST ^NOVO INDUSTRI^ [Concomitant]
     Indication: BLOOD LUTEINISING HORMONE DECREASED
     Dosage: 2 MG, 1X/DAY
     Dates: start: 19880701, end: 20040914

REACTIONS (1)
  - GALLBLADDER DISORDER [None]
